APPROVED DRUG PRODUCT: IBUPROFEN
Active Ingredient: IBUPROFEN
Strength: 200MG
Dosage Form/Route: TABLET;ORAL
Application: A214003 | Product #001
Applicant: YICHANG HUMANWELL PHARMACEUTICAL CO LTD
Approved: Oct 19, 2020 | RLD: No | RS: No | Type: DISCN